FAERS Safety Report 12434083 (Version 3)
Quarter: 2017Q2

REPORT INFORMATION
  Report Type: Report from Study
  Country: US (occurrence: US)
  Receive Date: 20160603
  Receipt Date: 20170628
  Transmission Date: 20170830
  Serious: Yes (Hospitalization)
  Sender: FDA-Public Use
  Company Number: US-VERTEX PHARMACEUTICALS-2016-003465

PATIENT
  Sex: Female
  Weight: 46 kg

DRUGS (35)
  1. CAYSTON [Concomitant]
     Active Substance: AZTREONAM
     Dosage: 1 ML VIAL, TID, 28 DAYS ON 28 OFF
     Route: 055
  2. VITAMIN D3 [Concomitant]
     Active Substance: CHOLECALCIFEROL
     Dosage: 1 DF, EVERY DAY
     Route: 048
  3. ONDANSETRON [Concomitant]
     Active Substance: ONDANSETRON
     Indication: VOMITING
  4. VORI [Concomitant]
     Dosage: RINSE TWICE DAILY
  5. ORKAMBI [Suspect]
     Active Substance: IVACAFTOR\LUMACAFTOR
     Dosage: 2 DF (200/ 125 MG EACH), BID
     Route: 048
  6. ONDANSETRON [Concomitant]
     Active Substance: ONDANSETRON
     Indication: NAUSEA
     Dosage: 1 DF, PRN, EVERY 6 TO 8 HOURS
     Route: 048
  7. PROVENTIL HFA [Concomitant]
     Active Substance: ALBUTEROL SULFATE
     Indication: COUGH
     Dosage: 2 PUFFS EVERY 3-4 HOURS AS NEEDED
     Route: 055
  8. PULMOZYME [Concomitant]
     Active Substance: DORNASE ALFA
     Dosage: USE 1 AMPULE VIA NEBULIZER TWICE DAILY
     Route: 055
  9. ADVAIR HFA [Concomitant]
     Active Substance: FLUTICASONE PROPIONATE\SALMETEROL XINAFOATE
     Dosage: INHALE 2 PUFF(S) TWICE A DAY, WITH SPACER
     Route: 055
  10. ALBUTEROL SULFATE. [Concomitant]
     Active Substance: ALBUTEROL SULFATE
     Indication: WHEEZING
  11. MEPHYTON [Concomitant]
     Active Substance: PHYTONADIONE
     Dosage: 1 DF, 90 DAYS
     Route: 048
  12. MONTELUKAST [Concomitant]
     Active Substance: MONTELUKAST SODIUM
     Dosage: 1 DF, EVERY DAY
     Route: 048
  13. BUDESONIDE. [Concomitant]
     Active Substance: BUDESONIDE
     Dosage: RINSE TWICE DAILY
  14. ALBUTEROL SULFATE. [Concomitant]
     Active Substance: ALBUTEROL SULFATE
     Indication: COUGH
     Dosage: 1 VIAL VIA NEB 3 TIMES A DAY OR EVERY 3-4 HRS AS NEEDED
     Route: 055
  15. COLISTIN [Concomitant]
     Active Substance: COLISTIN
     Indication: INFECTIVE PULMONARY EXACERBATION OF CYSTIC FIBROSIS
     Dosage: 150 MG, WITH 2 ML STERILE WATER, BID
  16. FLAXSEED [Concomitant]
     Active Substance: FLAX SEED
     Dosage: 5 DF, TID, WITH EACH MEAL
  17. OMEGA 3-6-9 [Concomitant]
     Active Substance: FISH OIL
     Dosage: 1 DF, TID
  18. SODIUM CHLORIDE. [Concomitant]
     Active Substance: SODIUM CHLORIDE
     Dosage: 4 ML TWICE A DAY
     Route: 055
  19. ALBUTEROL SULFATE. [Concomitant]
     Active Substance: ALBUTEROL SULFATE
     Indication: DYSPNOEA
  20. ORKAMBI [Suspect]
     Active Substance: IVACAFTOR\LUMACAFTOR
     Indication: CYSTIC FIBROSIS
     Dosage: 2 DF, BID
     Route: 048
     Dates: start: 20151017
  21. COLISTIN [Concomitant]
     Active Substance: COLISTIN
     Dosage: UNK
     Route: 055
  22. FERROUS SULFATE. [Concomitant]
     Active Substance: FERROUS SULFATE
     Dosage: 1 DF, DAILY
     Route: 048
  23. OMEPRAZOLE. [Concomitant]
     Active Substance: OMEPRAZOLE
     Dosage: 1 DF, EVERY DAY
     Route: 048
  24. OSCAL D [Concomitant]
     Active Substance: CALCIUM CARBONATE\CHOLECALCIFEROL
     Dosage: TAKE 1 TABLET(S) TWICE A DAY
     Route: 048
  25. PROVENTIL HFA [Concomitant]
     Active Substance: ALBUTEROL SULFATE
     Indication: DYSPNOEA
  26. FLUTICASONE. [Concomitant]
     Active Substance: FLUTICASONE
     Dosage: 2 DF, EVERY DAY
     Route: 045
  27. PROVENTIL HFA [Concomitant]
     Active Substance: ALBUTEROL SULFATE
     Indication: WHEEZING
  28. SELENIUM [Concomitant]
     Active Substance: SELENIUM
     Dosage: ONE CAPSULE TWICE DAILY
  29. VITAMIN E [Concomitant]
     Active Substance: .ALPHA.-TOCOPHEROL
     Dosage: ONE CAPSULE DAILY
  30. ZENPEP [Concomitant]
     Active Substance: PANCRELIPASE AMYLASE\PANCRELIPASE LIPASE\PANCRELIPASE PROTEASE
     Dosage: 5 CAPS BEFORE MEALS; 2 CAPS BEFORE SNACKS
     Route: 048
  31. CALCITRIOL. [Concomitant]
     Active Substance: CALCITRIOL
     Dosage: 1 DF, QD (FOR 90 DAYS)
     Route: 048
  32. COPPER GLUCONATE [Concomitant]
     Active Substance: COPPER GLUCONATE
     Dosage: 1 DF, QD
     Route: 048
  33. SCANDISHAKE MIX [Concomitant]
     Active Substance: DIETARY SUPPLEMENT
     Dosage: TAKE 2 PACKET(S) EVERY DAY
     Route: 048
  34. AZITHROMYCIN ANHYDROUS. [Concomitant]
     Active Substance: AZITHROMYCIN ANHYDROUS
     Dosage: TAKE 1 TABLET BY MOUTH EVERY MONDAY, WEDNESDAY AND FRIDAY
     Route: 048
  35. BETHKIS [Concomitant]
     Active Substance: TOBRAMYCIN
     Dosage: 4 ML, BID
     Route: 055

REACTIONS (3)
  - Drug dose omission [Unknown]
  - Infective pulmonary exacerbation of cystic fibrosis [Recovered/Resolved]
  - Staphylococcal infection [Unknown]

NARRATIVE: CASE EVENT DATE: 2016
